FAERS Safety Report 5741903-5 (Version None)
Quarter: 2008Q2

REPORT INFORMATION
  Report Type: 
  Country: None (occurrence: None)
  Receive Date: 20080514
  Receipt Date: 20080514
  Transmission Date: 20081010
  Serious: Yes (Hospitalization)
  Sender: FDA-Public Use
  Company Number: None

PATIENT
  Age: 63 Year
  Sex: Male
  Weight: 63 kg

DRUGS (6)
  1. RITUXAN [Suspect]
     Indication: MANTLE CELL LYMPHOMA
     Dosage: D3, FOR 6 CYCLES  IV
     Route: 042
     Dates: start: 20080208, end: 20080502
  2. CYTOXAN [Suspect]
     Dosage: D3, FOR 6 CYCLES  IV
     Route: 042
     Dates: start: 20080208, end: 20080502
  3. DOXORUBICIN HCL [Suspect]
     Indication: MANTLE CELL LYMPHOMA
     Dosage: D3, FOR 6 CYCLES  IV
     Route: 042
     Dates: start: 20080208, end: 20080502
  4. VINCRISTINE [Suspect]
     Indication: MANTLE CELL LYMPHOMA
     Dosage: D3, FOR 6 CYCLES IV
     Route: 042
     Dates: start: 20080208, end: 20080502
  5. PREDNISONE TAB [Suspect]
     Indication: MANTLE CELL LYMPHOMA
     Dosage: D3, FOR 6 CYCLES  IV
     Route: 042
     Dates: start: 20080208, end: 20080502
  6. BEVACIZUMAB [Suspect]
     Dosage: 15 MG/KG  D1, FOR 6 CYCLES IV
     Route: 042
     Dates: start: 20080206, end: 20080430

REACTIONS (2)
  - PLEURAL EFFUSION [None]
  - PNEUMOTHORAX [None]
